FAERS Safety Report 9266384 (Version 3)
Quarter: 2013Q3

REPORT INFORMATION
  Report Type: Report from Study
  Country: JP (occurrence: JP)
  Receive Date: 20130502
  Receipt Date: 20130920
  Transmission Date: 20140515
  Serious: Yes (Death, Life-Threatening, Hospitalization, Other)
  Sender: FDA-Public Use
  Company Number: JP-AMGEN-JPNCT2013030589

PATIENT
  Age: 79 Year
  Sex: Male
  Weight: 54 kg

DRUGS (35)
  1. DARBEPOETIN ALFA [Suspect]
     Indication: NEPHROGENIC ANAEMIA
     Dosage: 60 MUG, QD
     Route: 058
     Dates: start: 20110411, end: 20110411
  2. DARBEPOETIN ALFA [Suspect]
     Dosage: 60 MUG, Q4WK
     Route: 058
     Dates: start: 20110516, end: 20110808
  3. DARBEPOETIN ALFA [Suspect]
     Dosage: 60 MUG, QD
     Route: 058
     Dates: start: 20110912, end: 20110912
  4. DARBEPOETIN ALFA [Suspect]
     Dosage: 60 MUG, QD
     Route: 058
     Dates: start: 20111017, end: 20111017
  5. DARBEPOETIN ALFA [Suspect]
     Dosage: 60 MUG, QD
     Route: 058
     Dates: start: 20111114
  6. DARBEPOETIN ALFA [Suspect]
     Dosage: 120 MUG, QD
     Route: 058
     Dates: start: 20111212, end: 20111212
  7. DARBEPOETIN ALFA [Suspect]
     Dosage: 120 MUG, QD
     Route: 058
     Dates: start: 20120106, end: 20120106
  8. DARBEPOETIN ALFA [Suspect]
     Dosage: 120 MUG, QD
     Route: 058
     Dates: start: 20120130, end: 20120130
  9. DARBEPOETIN ALFA [Suspect]
     Dosage: 120 MUG, QD
     Route: 058
     Dates: start: 20120213, end: 20120213
  10. DARBEPOETIN ALFA [Suspect]
     Dosage: 120 MUG, QD
     Route: 058
     Dates: start: 20120305, end: 20120305
  11. DARBEPOETIN ALFA [Suspect]
     Dosage: 120 MUG, Q2WK
     Route: 058
     Dates: start: 20120312, end: 20120409
  12. DARBEPOETIN ALFA [Suspect]
     Dosage: 120 MUG, QD
     Route: 058
     Dates: start: 20120501, end: 20130516
  13. DARBEPOETIN ALFA [Suspect]
     Dosage: 120 MUG, QD
     Route: 058
     Dates: start: 20120524, end: 20120524
  14. DARBEPOETIN ALFA [Suspect]
     Dosage: 120 MUG, QD
     Route: 058
     Dates: start: 20120611, end: 20120611
  15. LASIX [Concomitant]
     Indication: DIABETIC NEPHROPATHY
     Dosage: UNK
     Route: 048
  16. ONEALFA [Concomitant]
     Dosage: UNK
     Route: 048
  17. AMLODIPINE [Concomitant]
     Dosage: UNK
     Route: 048
  18. PROMAC [Concomitant]
     Indication: DIABETIC NEPHROPATHY
     Dosage: UNK
     Route: 048
  19. BAYASPIRIN [Concomitant]
     Dosage: UNK
     Route: 048
  20. FOIPAN [Concomitant]
     Dosage: UNK
     Route: 048
  21. WARFARIN [Concomitant]
     Dosage: UNK
     Route: 048
  22. KERATINAMIN [Concomitant]
     Dosage: UNK
     Route: 061
  23. NOVORAPID [Concomitant]
     Dosage: UNK
     Route: 065
  24. BASTAMION [Concomitant]
     Dosage: UNK
     Route: 048
  25. FERROMIA [Concomitant]
     Dosage: UNK
     Route: 048
  26. FLUITRAN [Concomitant]
     Dosage: UNK
     Route: 048
  27. FEBURIC [Concomitant]
     Dosage: UNK
     Route: 048
  28. CALONAL [Concomitant]
     Dosage: UNK
     Route: 048
  29. FRANDOL [Concomitant]
     Dosage: UNK
     Route: 062
  30. SODIUM BICARBONATE [Concomitant]
     Indication: DIABETIC NEPHROPATHY
     Dosage: UNK
     Route: 048
  31. CHARCOAL [Concomitant]
     Indication: DIABETIC NEPHROPATHY
     Dosage: UNK
     Route: 048
  32. PRECIPITATED CALCIUM CARBONATE [Concomitant]
     Dosage: UNK
     Route: 048
  33. THYRADIN S [Concomitant]
     Dosage: UNK
     Route: 048
  34. LECICARBON [Concomitant]
     Dosage: UNK
     Route: 054
  35. BLOOD TRANSFUSION, AUXILIARY PRODUCTS [Concomitant]
     Dosage: UNK
     Dates: start: 20120409, end: 20120820

REACTIONS (18)
  - Colon cancer [Recovered/Resolved]
  - Pneumonia [Fatal]
  - Renal disorder [Not Recovered/Not Resolved]
  - Renal impairment [Recovering/Resolving]
  - Interstitial lung disease [Recovered/Resolved]
  - Anaemia postoperative [Not Recovered/Not Resolved]
  - Gastrointestinal stoma necrosis [Recovered/Resolved]
  - Tracheostomy [Not Recovered/Not Resolved]
  - Blood pressure decreased [Not Recovered/Not Resolved]
  - Drug effect decreased [Not Recovered/Not Resolved]
  - Febrile nonhaemolytic transfusion reaction [Recovered/Resolved]
  - Constipation [Recovered/Resolved]
  - Hypercholesterolaemia [Recovering/Resolving]
  - Hypothyroidism [Recovered/Resolved]
  - Hypercalcaemia [Recovered/Resolved]
  - Tachycardia [Recovering/Resolving]
  - Diarrhoea [Recovered/Resolved]
  - Hypertension [Recovered/Resolved]
